FAERS Safety Report 7339740-3 (Version None)
Quarter: 2011Q1

REPORT INFORMATION
  Report Type: 
  Country: None (occurrence: None)
  Receive Date: 20110309
  Receipt Date: 20110128
  Transmission Date: 20110831
  Serious: Yes (Hospitalization, Other)
  Sender: FDA-Public Use
  Company Number: US-BAYER-2011-020945

PATIENT
  Sex: Female
  Weight: 77 kg

DRUGS (3)
  1. ANALGESICS [Concomitant]
     Dosage: UNK UNK, PRN
  2. YASMIN [Suspect]
     Indication: CONTRACEPTION
     Dosage: UNK
     Dates: start: 20040601, end: 20050301
  3. ASCORBIN [Concomitant]

REACTIONS (8)
  - ALOPECIA [None]
  - DEPRESSION [None]
  - PULMONARY EMBOLISM [None]
  - STRESS [None]
  - DYSPNOEA [None]
  - DERMATITIS [None]
  - THROMBOSIS [None]
  - PAIN [None]
